FAERS Safety Report 4708172-6 (Version None)
Quarter: 2005Q3

REPORT INFORMATION
  Report Type: 
  Country: None (occurrence: None)
  Receive Date: 20050707
  Receipt Date: 20050623
  Transmission Date: 20060218
  Serious: Yes (Hospitalization)
  Sender: FDA-Public Use
  Company Number: US-AMGEN-KDL134698

PATIENT
  Sex: Male
  Weight: 95.3 kg

DRUGS (7)
  1. PROCRIT [Suspect]
     Indication: ANAEMIA
     Route: 058
     Dates: start: 20020520, end: 20050318
  2. ASPIRIN [Concomitant]
  3. FOLIC ACID [Concomitant]
  4. VITAMIN B-12 [Concomitant]
  5. LASIX [Concomitant]
  6. K-DUR 10 [Concomitant]
  7. DESFERAL [Concomitant]
     Dates: start: 20050520

REACTIONS (8)
  - ABDOMINAL PAIN [None]
  - DYSPNOEA [None]
  - FATIGUE [None]
  - HYPERTENSION [None]
  - NASOPHARYNGITIS [None]
  - OEDEMA PERIPHERAL [None]
  - PROTEINURIA [None]
  - RASH [None]
